FAERS Safety Report 24155177 (Version 2)
Quarter: 2024Q3

REPORT INFORMATION
  Report Type: Spontaneous
  Country: BR (occurrence: BR)
  Receive Date: 20240731
  Receipt Date: 20240731
  Transmission Date: 20241017
  Serious: Yes (Other)
  Sender: BOEHRINGER INGELHEIM
  Company Number: BR-BoehringerIngelheim-2024-BI-041937

PATIENT
  Age: 24 Year
  Sex: Female
  Weight: 50 kg

DRUGS (2)
  1. ATROVENT [Suspect]
     Active Substance: IPRATROPIUM BROMIDE
     Indication: Product used for unknown indication
     Dosage: 30 DROPS EVERY 6 HOURS.
     Route: 048
     Dates: start: 20240721, end: 20240724
  2. PHENOBARBITAL [Suspect]
     Active Substance: PHENOBARBITAL
     Indication: Product used for unknown indication

REACTIONS (8)
  - Anuria [Not Recovered/Not Resolved]
  - Wrong product administered [Recovered/Resolved]
  - Vomiting [Not Recovered/Not Resolved]
  - Nausea [Not Recovered/Not Resolved]
  - Dry mouth [Not Recovered/Not Resolved]
  - Urinary retention [Not Recovered/Not Resolved]
  - Tachycardia [Not Recovered/Not Resolved]
  - Salivary hyposecretion [Unknown]

NARRATIVE: CASE EVENT DATE: 20240721
